FAERS Safety Report 6111274-3 (Version None)
Quarter: 2009Q1

REPORT INFORMATION
  Report Type: 
  Country: None (occurrence: None)
  Receive Date: 20090309
  Receipt Date: 20090309
  Transmission Date: 20090719
  Serious: No
  Sender: FDA-Public Use
  Company Number: None

PATIENT
  Age: 39 Year
  Sex: Male
  Weight: 65.7716 kg

DRUGS (2)
  1. PROGRAF [Suspect]
     Indication: HEART AND LUNG TRANSPLANT
     Dosage: 3MG BID PO
     Route: 048
     Dates: start: 20000112, end: 20051217
  2. PROGRAF [Suspect]
     Indication: RENAL TRANSPLANT
     Dosage: 3MG BID PO
     Route: 048
     Dates: start: 20000112, end: 20051217

REACTIONS (1)
  - PROGRESSIVE MULTIFOCAL LEUKOENCEPHALOPATHY [None]
